FAERS Safety Report 11930071 (Version 5)
Quarter: 2017Q2

REPORT INFORMATION
  Report Type: Report from Study
  Country: TR (occurrence: TR)
  Receive Date: 20160120
  Receipt Date: 20170407
  Transmission Date: 20170829
  Serious: Yes (Death, Hospitalization)
  Sender: FDA-Public Use
  Company Number: TR-ROCHE-1694191

PATIENT
  Age: 64 Year
  Sex: Male
  Weight: 87.8 kg

DRUGS (9)
  1. LEVEMIR [Concomitant]
     Active Substance: INSULIN DETEMIR
     Indication: DIABETES MELLITUS
     Route: 058
     Dates: start: 2012
  2. HUMALOG [Concomitant]
     Active Substance: INSULIN LISPRO
     Indication: DIABETES MELLITUS
     Route: 058
     Dates: start: 2012
  3. PLAVIX [Concomitant]
     Active Substance: CLOPIDOGREL BISULFATE
     Route: 048
     Dates: start: 20151027
  4. CLEXANE [Concomitant]
     Active Substance: ENOXAPARIN SODIUM
     Indication: CORONARY ARTERY DISEASE
     Route: 058
     Dates: start: 20160101
  5. LIPOFEN [Concomitant]
     Active Substance: FENOFIBRATE
     Indication: DIABETES MELLITUS
     Route: 048
     Dates: start: 2012
  6. OBINUTUZUMAB [Suspect]
     Active Substance: OBINUTUZUMAB
     Indication: CHRONIC LYMPHOCYTIC LEUKAEMIA
     Dosage: MOST RECENT DOSE PRIOR TO SAES: 04/JAN/2016?FREQUENCY AS PER PROTOCOL: DAYS 1+2 (100 MG ON DAY 1 AND
     Route: 042
     Dates: start: 20151012
  7. GLUKOFEN [Concomitant]
     Active Substance: METFORMIN HYDROCHLORIDE
     Indication: DIABETES MELLITUS
     Route: 048
     Dates: start: 2013
  8. ZEFFIX [Concomitant]
     Active Substance: LAMIVUDINE
     Indication: PROPHYLAXIS
     Route: 048
     Dates: start: 20151013
  9. IBRUTINIB [Suspect]
     Active Substance: IBRUTINIB
     Indication: CHRONIC LYMPHOCYTIC LEUKAEMIA
     Dosage: MOST RECENT DOSE PRIOR TO SAES: 03/JAN/2016
     Route: 048
     Dates: start: 20151012

REACTIONS (4)
  - Acute coronary syndrome [Recovered/Resolved]
  - Pleural effusion [Recovered/Resolved]
  - Bacterial sepsis [Fatal]
  - Cerebral ischaemia [Recovered/Resolved]

NARRATIVE: CASE EVENT DATE: 20160105
